FAERS Safety Report 19772168 (Version 7)
Quarter: 2021Q4

REPORT INFORMATION
  Report Type: Report from Study
  Country: US (occurrence: US)
  Receive Date: 20210831
  Receipt Date: 20211117
  Transmission Date: 20220303
  Serious: Yes (Other)
  Sender: FDA-Public Use
  Company Number: US-BOEHRINGERINGELHEIM-2021-BI-111124

PATIENT
  Age: 65 Year
  Sex: Male

DRUGS (4)
  1. OFEV [Suspect]
     Active Substance: NINTEDANIB
     Indication: Idiopathic pulmonary fibrosis
     Dosage: 100MG BY MOUTH TWICE DAILY
     Route: 048
     Dates: start: 20210525, end: 202106
  2. OFEV [Suspect]
     Active Substance: NINTEDANIB
     Route: 048
     Dates: start: 20210708
  3. OFEV [Suspect]
     Active Substance: NINTEDANIB
     Route: 048
     Dates: start: 20210907
  4. DEXAMETHASONE [Suspect]
     Active Substance: DEXAMETHASONE
     Indication: Product used for unknown indication
     Route: 065

REACTIONS (53)
  - Hepatic cirrhosis [Unknown]
  - Abdominal pain upper [Recovered/Resolved]
  - Abdominal discomfort [Recovered/Resolved]
  - Fatigue [Not Recovered/Not Resolved]
  - Nausea [Recovered/Resolved]
  - Musculoskeletal chest pain [Recovered/Resolved]
  - Anxiety [Not Recovered/Not Resolved]
  - Chest discomfort [Recovered/Resolved]
  - Palpitations [Recovering/Resolving]
  - White blood cell count decreased [Unknown]
  - Red blood cell count decreased [Unknown]
  - Aspartate aminotransferase increased [Unknown]
  - Lower respiratory tract congestion [Recovered/Resolved]
  - Productive cough [Recovered/Resolved]
  - Muscle spasms [Unknown]
  - Gastric disorder [Not Recovered/Not Resolved]
  - Abdominal pain upper [Not Recovered/Not Resolved]
  - Nausea [Not Recovered/Not Resolved]
  - Hepatic enzyme increased [Unknown]
  - Pneumonia [Recovering/Resolving]
  - Dyspepsia [Not Recovered/Not Resolved]
  - Abdominal distension [Not Recovered/Not Resolved]
  - Hiccups [Not Recovered/Not Resolved]
  - Eructation [Not Recovered/Not Resolved]
  - Weight increased [Recovered/Resolved]
  - Oxygen saturation decreased [Recovered/Resolved]
  - X-ray abnormal [Not Recovered/Not Resolved]
  - Dyspnoea [Recovered/Resolved]
  - Peripheral swelling [Not Recovered/Not Resolved]
  - Joint swelling [Not Recovered/Not Resolved]
  - Swelling face [Not Recovered/Not Resolved]
  - Muscle tightness [Not Recovered/Not Resolved]
  - Burning sensation [Not Recovered/Not Resolved]
  - Vomiting [Unknown]
  - Red blood cell count decreased [Unknown]
  - Abdominal discomfort [Not Recovered/Not Resolved]
  - Fatigue [Not Recovered/Not Resolved]
  - Asthenia [Unknown]
  - Nausea [Unknown]
  - Dyspepsia [Unknown]
  - Wheezing [Unknown]
  - Abdominal discomfort [Unknown]
  - Musculoskeletal chest pain [Unknown]
  - Humidity intolerance [Not Recovered/Not Resolved]
  - Depression [Not Recovered/Not Resolved]
  - Chest discomfort [Recovered/Resolved]
  - Musculoskeletal chest pain [Recovered/Resolved]
  - Splenomegaly [Not Recovered/Not Resolved]
  - Fatigue [Not Recovered/Not Resolved]
  - Abdominal discomfort [Recovered/Resolved]
  - Dyspnoea [Unknown]
  - Gastrooesophageal reflux disease [Recovered/Resolved]
  - Panic attack [Unknown]

NARRATIVE: CASE EVENT DATE: 20210601
